FAERS Safety Report 9340828 (Version 1)
Quarter: 2013Q2

REPORT INFORMATION
  Report Type: Spontaneous
  Country: US (occurrence: US)
  Receive Date: 20130610
  Receipt Date: 20130610
  Transmission Date: 20140414
  Serious: No
  Sender: FDA-Public Use
  Company Number: US-TEVA-411321USA

PATIENT
  Age: 21 Year
  Sex: Female
  Weight: 68.1 kg

DRUGS (2)
  1. PLAN B ONE-STEP [Suspect]
     Indication: POST COITAL CONTRACEPTION
     Dosage: 1.5 MILLIGRAM DAILY;
     Route: 048
     Dates: start: 20130531, end: 20130531
  2. BEYAZ [Concomitant]
     Indication: ORAL CONTRACEPTION
     Dates: start: 201108

REACTIONS (2)
  - Back pain [Recovered/Resolved]
  - Pelvic pain [Recovered/Resolved]
